FAERS Safety Report 5626999-3 (Version None)
Quarter: 2008Q1

REPORT INFORMATION
  Report Type: 
  Country: None (occurrence: None)
  Receive Date: 20080117
  Receipt Date: 20071001
  Transmission Date: 20080703
  Serious: Yes (Other)
  Sender: FDA-Public Use
  Company Number: 523647

PATIENT
  Age: 78 Year
  Sex: Female

DRUGS (5)
  1. TRETINOIN [Suspect]
     Indication: ACUTE PROMYELOCYTIC LEUKAEMIA
  2. METOPROLOL TARTRATE [Concomitant]
  3. RANITIDINE [Concomitant]
  4. DAUNORUBICIN HCL [Concomitant]
  5. CYTARABINE [Concomitant]

REACTIONS (1)
  - RETINOIC ACID SYNDROME [None]
